FAERS Safety Report 13543770 (Version 1)
Quarter: 2017Q2

REPORT INFORMATION
  Report Type: Report from Study
  Country: US (occurrence: US)
  Receive Date: 20170515
  Receipt Date: 20170515
  Transmission Date: 20170830
  Serious: Yes (Hospitalization)
  Sender: FDA-Public Use
  Company Number: US-B.I. PHARMACEUTICALS,INC./RIDGEFIELD-2017-BI-026122

PATIENT
  Age: 61 Year
  Sex: Female

DRUGS (4)
  1. GLYXAMBI [Suspect]
     Active Substance: EMPAGLIFLOZIN\LINAGLIPTIN
     Indication: DIABETES MELLITUS
     Dosage: 1 TABLET DAILY ; FORM STRENGTH, UNIT DOSE, AND DAILY DOSE: 25 MG/ 5 MG; FORMULATION: TABLET? ADMINIS
     Route: 048
     Dates: start: 201605
  2. ELIQUIS [Concomitant]
     Active Substance: APIXABAN
     Indication: ANTICOAGULANT THERAPY
     Dosage: 1 TAB DAILY;  FORM STRENGTH: 5 MG; FORMULATION: TABLET
     Route: 048
  3. GLIPIZIDE. [Concomitant]
     Active Substance: GLIPIZIDE
     Indication: PRODUCT USED FOR UNKNOWN INDICATION
     Dosage: 1 TAB BID;  FORM STRENGTH: 5MG; FORMULATION: TABLET
     Route: 048
  4. ASPIRIN. [Concomitant]
     Active Substance: ASPIRIN
     Indication: ROUTINE HEALTH MAINTENANCE
     Dosage: 1 TAB DAILY;  FORM STRENGTH: 81MG; FORMULATION: TABLET
     Route: 048

REACTIONS (2)
  - Postoperative wound infection [Not Recovered/Not Resolved]
  - Gangrene [Recovered/Resolved]

NARRATIVE: CASE EVENT DATE: 201612
